FAERS Safety Report 6295527-4 (Version None)
Quarter: 2009Q3

REPORT INFORMATION
  Report Type: 
  Country: None (occurrence: None)
  Receive Date: 20090731
  Receipt Date: 20090716
  Transmission Date: 20100115
  Serious: Yes (Hospitalization)
  Sender: FDA-Public Use
  Company Number: IDA-00225

PATIENT
  Age: 29 Year
  Sex: Female

DRUGS (6)
  1. PROPRANOLOL [Suspect]
     Indication: SINUS TACHYCARDIA
     Dosage: 10 MG TID ORAL / 5 MG BID ORAL
     Route: 048
     Dates: start: 20070430, end: 20070510
  2. PROPRANOLOL [Suspect]
     Indication: SINUS TACHYCARDIA
     Dosage: 10 MG TID ORAL / 5 MG BID ORAL
     Route: 048
     Dates: start: 20070511, end: 20070516
  3. PROPRANOLOL [Suspect]
     Indication: SINUS TACHYCARDIA
     Dosage: 10 MG TID ORAL / 5 MG BID ORAL
     Route: 048
     Dates: start: 20070517, end: 20070518
  4. NO MATCH (NO MATCH) [Concomitant]
  5. EPOGEN [Concomitant]
  6. (THIAMAZOLE) [Concomitant]

REACTIONS (1)
  - HYPERKALAEMIA [None]
